FAERS Safety Report 19675127 (Version 1)
Quarter: 2021Q3

REPORT INFORMATION
  Report Type: Spontaneous
  Country: US (occurrence: US)
  Receive Date: 20210809
  Receipt Date: 20210809
  Transmission Date: 20211014
  Serious: No
  Sender: FDA-Public Use
  Company Number: US-ROCHE-2842783

PATIENT
  Sex: Male

DRUGS (2)
  1. BONIVA [Suspect]
     Active Substance: IBANDRONATE SODIUM
     Indication: PRODUCT USED FOR UNKNOWN INDICATION
     Route: 065
  2. XOLAIR [Suspect]
     Active Substance: OMALIZUMAB
     Indication: IDIOPATHIC URTICARIA
     Route: 030
     Dates: start: 2018

REACTIONS (4)
  - Peripheral swelling [Unknown]
  - Urticaria [Unknown]
  - Erythema [Unknown]
  - Off label use [Unknown]
